FAERS Safety Report 20861185 (Version 4)
Quarter: 2022Q3

REPORT INFORMATION
  Report Type: Spontaneous
  Country: DE (occurrence: DE)
  Receive Date: 20220523
  Receipt Date: 20220708
  Transmission Date: 20221026
  Serious: Yes (Other)
  Sender: FDA-Public Use
  Company Number: DE-DCGMA-22198042

PATIENT
  Age: 53 Year
  Sex: Female
  Weight: 72 kg

DRUGS (5)
  1. TOUJEO [Suspect]
     Active Substance: INSULIN GLARGINE
     Dosage: 24 IU, QD, 2 SEPARATED DOSES
     Route: 030
  2. TOUJEO [Suspect]
     Active Substance: INSULIN GLARGINE
     Dosage: (12IU+12IU), IN THE MORNING AND EVENING
  3. LEVOTHYROXINE [Concomitant]
     Active Substance: LEVOTHYROXINE
  4. RAMIPRIL [Concomitant]
     Active Substance: RAMIPRIL
  5. NOVORAPID [Concomitant]
     Active Substance: INSULIN ASPART
     Route: 030

REACTIONS (6)
  - Palpitations [Unknown]
  - Malaise [Unknown]
  - Blood glucose fluctuation [Unknown]
  - Hypoglycaemia [Unknown]
  - Suspected product quality issue [Unknown]
  - Intentional product misuse [Unknown]
